FAERS Safety Report 11130592 (Version 2)
Quarter: 2015Q3

REPORT INFORMATION
  Report Type: Report from Study
  Country: CA (occurrence: CA)
  Receive Date: 20150522
  Receipt Date: 20150818
  Transmission Date: 20151125
  Serious: Yes (Hospitalization, Other)
  Sender: FDA-Public Use
  Company Number: CA-ROCHE-1581504

PATIENT
  Age: 80 Year
  Sex: Female

DRUGS (4)
  1. RANIBIZUMAB [Suspect]
     Active Substance: RANIBIZUMAB
     Indication: NEOVASCULAR AGE-RELATED MACULAR DEGENERATION
     Route: 050
     Dates: start: 20150415
  2. CIPRODEX (CANADA) [Concomitant]
  3. BENYLIN DM (CANADA) [Concomitant]
  4. CEFTRIAXONE. [Concomitant]
     Active Substance: CEFTRIAXONE

REACTIONS (4)
  - Meningitis [Recovering/Resolving]
  - Sinusitis [Recovering/Resolving]
  - Diarrhoea [Recovered/Resolved]
  - Ear infection [Recovering/Resolving]

NARRATIVE: CASE EVENT DATE: 20150417
